FAERS Safety Report 7060840-X (Version None)
Quarter: 2010Q4

REPORT INFORMATION
  Report Type: 
  Country: None (occurrence: None)
  Receive Date: 20101025
  Receipt Date: 20101020
  Transmission Date: 20110411
  Serious: Yes (Other)
  Sender: FDA-Public Use
  Company Number: US-WYE-H18274310

PATIENT
  Sex: Female
  Weight: 90.8 kg

DRUGS (4)
  1. PREMARIN [Suspect]
     Route: 048
     Dates: start: 19870101
  2. PREMARIN [Suspect]
     Route: 048
  3. FLEXERIL [Concomitant]
     Indication: BACK DISORDER
     Dosage: UNKNOWN
     Route: 065
  4. ALLEGRO [Concomitant]
     Dosage: UNKNOWN
     Route: 065

REACTIONS (4)
  - BLOOD GLUCOSE DECREASED [None]
  - MIGRAINE [None]
  - VISION BLURRED [None]
  - VITAMIN D DECREASED [None]
